FAERS Safety Report 15088534 (Version 1)
Quarter: 2018Q2

REPORT INFORMATION
  Report Type: Spontaneous
  Country: SE (occurrence: SE)
  Receive Date: 20180629
  Receipt Date: 20180629
  Transmission Date: 20180711
  Serious: Yes (Life-Threatening)
  Sender: FDA-Public Use
  Company Number: SE-TEVA-2018-SE-913052

PATIENT
  Age: 79 Year
  Sex: Female

DRUGS (4)
  1. ROACTEMRA [Suspect]
     Active Substance: TOCILIZUMAB
     Indication: TEMPORAL ARTERITIS
     Route: 065
     Dates: start: 20170905, end: 20180122
  2. PREDNISOLONE. [Suspect]
     Active Substance: PREDNISOLONE
     Indication: TEMPORAL ARTERITIS
     Route: 065
     Dates: start: 20090929
  3. ROACTEMRA [Suspect]
     Active Substance: TOCILIZUMAB
     Indication: POLYMYALGIA RHEUMATICA
     Route: 065
  4. PREDNISOLONE. [Suspect]
     Active Substance: PREDNISOLONE
     Indication: POLYMYALGIA RHEUMATICA
     Route: 065

REACTIONS (3)
  - Oral herpes [Recovering/Resolving]
  - Liver abscess [Recovering/Resolving]
  - Sepsis [Recovering/Resolving]

NARRATIVE: CASE EVENT DATE: 20180123
